FAERS Safety Report 5822398-X (Version None)
Quarter: 2008Q3

REPORT INFORMATION
  Report Type: 
  Country: None (occurrence: None)
  Receive Date: 20080721
  Receipt Date: 20080716
  Transmission Date: 20090109
  Serious: Yes (Hospitalization)
  Sender: FDA-Public Use
  Company Number: 2008SP014531

PATIENT
  Age: 53 Year
  Sex: Male
  Weight: 126 kg

DRUGS (5)
  1. INTRON A [Suspect]
     Indication: MALIGNANT MELANOMA
     Dosage: 40 MIU QD IV
     Route: 042
     Dates: start: 20080526, end: 20080620
  2. TYLENOL WITH CODEINE NO.1 [Concomitant]
  3. ADVIL [Concomitant]
  4. MULTI-VITAMIN [Concomitant]
  5. MAXERAN [Concomitant]

REACTIONS (2)
  - FEBRILE NEUTROPENIA [None]
  - PANCYTOPENIA [None]
